FAERS Safety Report 4919176-2 (Version None)
Quarter: 2006Q1

REPORT INFORMATION
  Report Type: 
  Country: None (occurrence: None)
  Receive Date: 20060113
  Receipt Date: 20051206
  Transmission Date: 20060701
  Serious: No
  Sender: FDA-Public Use
  Company Number: 2005SP004257

PATIENT
  Age: 34 Year
  Sex: Female
  Weight: 134.2647 kg

DRUGS (5)
  1. LUNESTA [Suspect]
     Indication: INSOMNIA
     Dosage: SEE IMAGE
     Route: 048
     Dates: start: 20051205, end: 20051205
  2. LUNESTA [Suspect]
     Indication: INSOMNIA
     Dosage: SEE IMAGE
     Route: 048
     Dates: start: 20051206
  3. CYMBALTA [Concomitant]
  4. ATORVASTATIN CALCIUM [Concomitant]
  5. RISPERDAL [Concomitant]

REACTIONS (1)
  - VISION BLURRED [None]
